FAERS Safety Report 6227617-6 (Version None)
Quarter: 2009Q2

REPORT INFORMATION
  Report Type: 
  Country: None (occurrence: None)
  Receive Date: 20090612
  Receipt Date: 20090602
  Transmission Date: 20091009
  Serious: Yes (Hospitalization, Other)
  Sender: FDA-Public Use
  Company Number: PHHY2009FR21586

PATIENT
  Age: 78 Year
  Sex: Male

DRUGS (8)
  1. TASIGNA [Suspect]
     Indication: CHRONIC MYELOID LEUKAEMIA
     Dosage: 200 MG, TID
     Dates: start: 20071008, end: 20090421
  2. TEMERIT [Concomitant]
  3. PERINDOPRIL ERBUMINE [Concomitant]
  4. PLAVIX [Concomitant]
  5. PRAXILENE [Concomitant]
  6. PREVISCAN [Concomitant]
  7. NEURONTIN [Concomitant]
  8. ACTISKENAN [Concomitant]

REACTIONS (11)
  - ABNORMAL BEHAVIOUR [None]
  - AGGRESSION [None]
  - CATATONIA [None]
  - CEREBRAL ATROPHY [None]
  - CEREBROVASCULAR ACCIDENT [None]
  - CONFUSIONAL STATE [None]
  - DELUSION [None]
  - FALL [None]
  - GENERAL PHYSICAL HEALTH DETERIORATION [None]
  - LEUKOENCEPHALOPATHY [None]
  - VASCULAR DEMENTIA [None]
